FAERS Safety Report 5414948-2 (Version None)
Quarter: 2007Q3

REPORT INFORMATION
  Report Type: 
  Country: None (occurrence: None)
  Receive Date: 20070813
  Receipt Date: 20070813
  Transmission Date: 20080115
  Serious: Yes (Death, Life-Threatening, Hospitalization, Disabling, Other)
  Sender: FDA-Public Use
  Company Number: None

PATIENT

DRUGS (2)
  1. VERSED [Suspect]
     Indication: INTUBATION
     Dosage: 1-10MG IVP
     Route: 042
     Dates: start: 19970101, end: 20070101
  2. VERSED [Suspect]
     Indication: SEDATIVE THERAPY
     Dosage: 1-10MG IVP
     Route: 042
     Dates: start: 19970101, end: 20070101

REACTIONS (1)
  - UNEVALUABLE EVENT [None]
